FAERS Safety Report 7137365-6 (Version None)
Quarter: 2010Q4

REPORT INFORMATION
  Report Type: 
  Country: None (occurrence: None)
  Receive Date: 20101206
  Receipt Date: 20101123
  Transmission Date: 20110411
  Serious: Yes (Other)
  Sender: FDA-Public Use
  Company Number: PHHY2010BR80569

PATIENT
  Sex: Female

DRUGS (3)
  1. DIOVAN HCT [Suspect]
     Indication: BLOOD PRESSURE
     Dosage: 320/12.5 MG, UNK
     Dates: start: 20101026
  2. RASILEZ [Suspect]
     Indication: BLOOD PRESSURE
     Dosage: UNK
     Dates: start: 20101026, end: 20101029
  3. LIVIAL [Concomitant]
     Indication: HORMONE REPLACEMENT THERAPY
     Dosage: 1 TABLET A DAY

REACTIONS (1)
  - BLOOD PRESSURE DECREASED [None]
